FAERS Safety Report 8518228-8 (Version None)
Quarter: 2012Q3

REPORT INFORMATION
  Report Type: 
  Country: None (occurrence: None)
  Receive Date: 20120718
  Receipt Date: 20111216
  Transmission Date: 20120928
  Serious: No
  Sender: FDA-Public Use
  Company Number: US-BRISTOL-MYERS SQUIBB COMPANY-16245375

PATIENT
  Age: 22 Year
  Sex: Female
  Weight: 70 kg

DRUGS (3)
  1. GENOTROPIN [Interacting]
     Indication: HYPOPITUITARISM
     Dates: start: 20090501
  2. COUMADIN [Suspect]
     Indication: THROMBOSIS
  3. SYNTHROID [Interacting]
     Indication: THYROID DISORDER

REACTIONS (1)
  - DRUG INTERACTION [None]
